FAERS Safety Report 4373741-2 (Version None)
Quarter: 2004Q2

REPORT INFORMATION
  Report Type: 
  Country: None (occurrence: None)
  Receive Date: 20040603
  Receipt Date: 20040513
  Transmission Date: 20050107
  Serious: Yes (Death, Hospitalization)
  Sender: FDA-Public Use
  Company Number: JP_040503145

PATIENT
  Age: 70 Year
  Sex: Female
  Weight: 43 kg

DRUGS (4)
  1. ONCOVIN [Suspect]
     Indication: ADULT T-CELL LYMPHOMA/LEUKAEMIA
     Dosage: 1 MG OTHER
     Route: 050
  2. ETOPOSIDE [Concomitant]
  3. PREDNISOLONE [Concomitant]
  4. DOXORUBICIN HYDROCHLORIDE [Concomitant]

REACTIONS (4)
  - GASTRIC PERFORATION [None]
  - NEOPLASM PROGRESSION [None]
  - T-CELL LYMPHOMA [None]
  - TUMOUR LYSIS SYNDROME [None]
